FAERS Safety Report 15954094 (Version 1)
Quarter: 2019Q1

REPORT INFORMATION
  Report Type: Spontaneous
  Country: JP (occurrence: JP)
  Receive Date: 20190213
  Receipt Date: 20190213
  Transmission Date: 20190417
  Serious: Yes (Other)
  Sender: FDA-Public Use
  Company Number: JP-PFIZER INC-2019052943

PATIENT
  Age: 86 Year
  Sex: Female

DRUGS (2)
  1. SOLANAX [Suspect]
     Active Substance: ALPRAZOLAM
     Dosage: 0.5 DF, 2X/DAY
     Route: 048
  2. SOLANAX [Suspect]
     Active Substance: ALPRAZOLAM
     Dosage: 1 DF, 3X/DAY
     Route: 048
     Dates: end: 201805

REACTIONS (3)
  - Fall [Unknown]
  - Dizziness [Unknown]
  - Compression fracture [Unknown]
